FAERS Safety Report 24529925 (Version 2)
Quarter: 2024Q4

REPORT INFORMATION
  Report Type: Spontaneous
  Country: IT (occurrence: IT)
  Receive Date: 20241021
  Receipt Date: 20241104
  Transmission Date: 20250114
  Serious: Yes (Other)
  Sender: VELOXIS PHARMACEUTICALS
  Company Number: IT-VELOXIS PHARMACEUTICALS, INC.-2024-VEL-00547

PATIENT
  Age: 15 Year
  Sex: Female

DRUGS (2)
  1. TACROLIMUS [Suspect]
     Active Substance: TACROLIMUS
     Indication: Renal transplant
     Dosage: UNK
  2. MYCOPHENOLATE MOFETIL [Suspect]
     Active Substance: MYCOPHENOLATE MOFETIL
     Indication: Renal transplant
     Dosage: UNK

REACTIONS (6)
  - Lupus pneumonitis [Recovered/Resolved]
  - SLE arthritis [Recovered/Resolved]
  - Transplant rejection [Unknown]
  - Acute kidney injury [Unknown]
  - Proteinuria [Unknown]
  - Product use issue [Unknown]
